FAERS Safety Report 8439047 (Version 2)
Quarter: 2013Q2

REPORT INFORMATION
  Report Type: Spontaneous
  Country: US (occurrence: None)
  Receive Date: 20120104
  Receipt Date: 20120508
  Transmission Date: 20140414
  Serious: No
  Sender: FDA-Public Use
  Company Number: 2011HGS-002627

PATIENT
  Age: 33 Year
  Sex: Female
  Weight: 75.3 kg

DRUGS (1)
  1. BENLYSTA [Suspect]
     Indication: SYSTEMIC LUPUS ERYTHEMATOSUS
     Dosage: 752 MG, 1 IN 2 WK, INTRAVENOUS
     Route: 042
     Dates: start: 20111005

REACTIONS (4)
  - HYPERSENSITIVITY [None]
  - FLUSHING [None]
  - URTICARIA [None]
  - PRURITUS [None]
